FAERS Safety Report 8095929 (Version 3)
Quarter: 2013Q3

REPORT INFORMATION
  Report Type: Spontaneous
  Country: US (occurrence: US)
  Receive Date: 20110818
  Receipt Date: 20130806
  Transmission Date: 20140515
  Serious: Yes (Other)
  Sender: FDA-Public Use
  Company Number: US-UCBSA-027342

PATIENT
  Age: 33 Year
  Sex: Female

DRUGS (4)
  1. CIMZIA [Suspect]
     Indication: CROHN^S DISEASE
     Route: 058
     Dates: start: 20090220
  2. CIMZIA [Suspect]
     Indication: CROHN^S DISEASE
     Route: 058
  3. CIMZIA [Suspect]
     Indication: CROHN^S DISEASE
     Route: 058
  4. CIMZIA [Suspect]
     Indication: CROHN^S DISEASE
     Route: 058

REACTIONS (8)
  - Caesarean section [Recovered/Resolved]
  - Sinusitis [Unknown]
  - Nasopharyngitis [Not Recovered/Not Resolved]
  - Blood iron decreased [Unknown]
  - Fatigue [Unknown]
  - Rhinitis allergic [Unknown]
  - Abdominal pain [Unknown]
  - Pregnancy [Unknown]
